FAERS Safety Report 7552383-1 (Version None)
Quarter: 2011Q2

REPORT INFORMATION
  Report Type: 
  Country: None (occurrence: None)
  Receive Date: 20110616
  Receipt Date: 20101210
  Transmission Date: 20111010
  Serious: Yes (Other)
  Sender: FDA-Public Use
  Company Number: PHHY2009US66611

PATIENT
  Sex: Female
  Weight: 58.957 kg

DRUGS (8)
  1. EXJADE [Suspect]
     Indication: CHELATION THERAPY
     Dosage: 2000 MG, QD
     Route: 048
     Dates: start: 20080101
  2. DECADRON [Concomitant]
  3. EXJADE [Suspect]
     Indication: IRON OVERLOAD
  4. ARANESP [Concomitant]
     Dosage: 300 UG, EITHER WEEKLY OR EVERY OTHER WEEK
     Route: 058
  5. LOPRESSOR [Concomitant]
     Dosage: 100 MG, BID
  6. FEMARA [Concomitant]
     Dosage: 2.5 MG, DAILY
  7. REVLIMID [Concomitant]
     Dosage: 10 MG, DAILY
  8. AMITRIPTYLINE HYDROCHLORIDE [Concomitant]
     Dosage: 20 MG, DAILY

REACTIONS (14)
  - MESENTERIC ARTERY THROMBOSIS [None]
  - WHITE BLOOD CELL COUNT DECREASED [None]
  - CANDIDIASIS [None]
  - FATIGUE [None]
  - BRONCHOPULMONARY ASPERGILLOSIS [None]
  - ACUTE MYELOID LEUKAEMIA [None]
  - HEADACHE [None]
  - THROMBOCYTOPENIA [None]
  - BONE PAIN [None]
  - BLOOD PRESSURE DECREASED [None]
  - BLOOD CHLORIDE INCREASED [None]
  - HYPERTENSION [None]
  - BLOOD GLUCOSE INCREASED [None]
  - INSOMNIA [None]
